FAERS Safety Report 15879420 (Version 1)
Quarter: 2019Q1

REPORT INFORMATION
  Report Type: Spontaneous
  Country: US (occurrence: US)
  Receive Date: 20190103
  Receipt Date: 20190103
  Transmission Date: 20190417
  Serious: No
  Sender: FDA-Public Use
  Company Number: None

PATIENT
  Age: 61 Year
  Sex: Female

DRUGS (1)
  1. TREMFYA [Suspect]
     Active Substance: GUSELKUMAB
     Indication: PSORIASIS
     Dosage: ?          OTHER FREQUENCY:EVERY 6 WEEKS;?
     Route: 058
     Dates: start: 20180216

REACTIONS (2)
  - Psoriasis [None]
  - Therapy cessation [None]

NARRATIVE: CASE EVENT DATE: 20180801
